FAERS Safety Report 5778008-3 (Version None)
Quarter: 2008Q2

REPORT INFORMATION
  Report Type: 
  Country: None (occurrence: None)
  Receive Date: 20080617
  Receipt Date: 20080603
  Transmission Date: 20081010
  Serious: Yes (Hospitalization)
  Sender: FDA-Public Use
  Company Number: 2008S1009413

PATIENT
  Age: 86 Year
  Sex: Male

DRUGS (18)
  1. FAMOTIDINE [Suspect]
     Dosage: 40 MG; DAILY
  2. FLUNISOLIDE [Concomitant]
  3. FUROSEMIDE [Suspect]
     Dosage: 20 MG; 3 TIMES PER WEEK;
  4. ALBUTEROL [Suspect]
  5. IPARTROPIUM BROMIDE INHALATION SOLUTION [Suspect]
  6. ISOSORBIDE MONONITRATE [Suspect]
     Dosage: 15 MG; DAILY;
  7. METOCLOPRAMIDE [Suspect]
     Dosage: 10 MG; 4 TIMES A DAY;
  8. SERTRALINE [Suspect]
     Dosage: 75 MG; DAILY;
  9. NITROGLYCERIN [Suspect]
     Dosage: .4 MG; SUBLINGUAL
     Route: 060
  10. SIMVASTATIN [Suspect]
     Dosage: 40 MG;
  11. DONEPEZIL HCL [Suspect]
     Dosage: 10 MG
  12. CYPROHEPTADINE HCL [Suspect]
     Dosage: 4 MG; DAILY;
  13. INSULIN [Suspect]
  14. INSULIN [Suspect]
  15. MOMETASONE FUROATE [Suspect]
     Dosage: INHALATION
     Route: 055
  16. LEVETIRACETAM [Suspect]
     Indication: CONVULSION
     Dosage: 1000 MG; TWICE A DAY;
  17. MAGNESIUM GLUCONATE [Suspect]
     Dosage: 500 MG; DAILY;
  18. MODAFINIL [Suspect]
     Indication: FATIGUE
     Dosage: 200 MG;

REACTIONS (3)
  - ANOREXIA [None]
  - DEHYDRATION [None]
  - NAUSEA [None]
